FAERS Safety Report 4861387-9 (Version None)
Quarter: 2005Q4

REPORT INFORMATION
  Report Type: 
  Country: None (occurrence: None)
  Receive Date: 20051129
  Receipt Date: 20050913
  Transmission Date: 20060501
  Serious: Yes (Hospitalization)
  Sender: FDA-Public Use
  Company Number: USA0507103042

PATIENT
  Age: 50 Year
  Sex: Female

DRUGS (3)
  1. ZYPREXA [Suspect]
     Indication: AGITATION
     Dosage: 10 MG
  2. PROZAC [Concomitant]
  3. RISPERDAL [Concomitant]

REACTIONS (2)
  - RESPIRATORY DEPRESSION [None]
  - SEDATION [None]
